FAERS Safety Report 25612013 (Version 1)
Quarter: 2025Q3

REPORT INFORMATION
  Report Type: Spontaneous
  Country: US (occurrence: US)
  Receive Date: 20250728
  Receipt Date: 20250728
  Transmission Date: 20251020
  Serious: Yes (Death, Life-Threatening, Hospitalization, Other)
  Sender: AUROBINDO
  Company Number: US-MLMSERVICE-20250710-PI573951-00271-1

PATIENT
  Age: 72 Year
  Sex: Female

DRUGS (1)
  1. PREDNISONE [Suspect]
     Active Substance: PREDNISONE
     Indication: Pulmonary alveolar haemorrhage
     Route: 065

REACTIONS (14)
  - Pneumonia necrotising [Fatal]
  - Pneumonia fungal [Fatal]
  - Embolism [Fatal]
  - Hepatic necrosis [Fatal]
  - Aspergillus infection [Fatal]
  - Mucormycosis [Fatal]
  - Candida infection [Fatal]
  - Hyperglycaemic hyperosmolar nonketotic syndrome [Unknown]
  - Encephalopathy [Unknown]
  - Acute kidney injury [Unknown]
  - Renal failure [Unknown]
  - Respiratory failure [Unknown]
  - Shock [Unknown]
  - Lactic acidosis [Unknown]
